FAERS Safety Report 18222169 (Version 3)
Quarter: 2021Q4

REPORT INFORMATION
  Report Type: Spontaneous
  Country: US (occurrence: US)
  Receive Date: 20200902
  Receipt Date: 20211029
  Transmission Date: 20220303
  Serious: No
  Sender: FDA-Public Use
  Company Number: US-PFIZER INC-2020098669

PATIENT
  Age: 21 Year
  Sex: Male

DRUGS (2)
  1. GENOTROPIN [Suspect]
     Active Substance: SOMATROPIN
     Dosage: 1.2MG ALTERNATING 1.4MG 6 DAYS A WEEK
     Dates: start: 20200421
  2. GENOTROPIN [Suspect]
     Active Substance: SOMATROPIN
     Dosage: 1.3 MG

REACTIONS (3)
  - Product prescribing error [Unknown]
  - Device breakage [Unknown]
  - Product dose omission issue [Unknown]
